FAERS Safety Report 17678269 (Version 1)
Quarter: 2020Q2

REPORT INFORMATION
  Report Type: Report from Study
  Country: US (occurrence: US)
  Receive Date: 20200417
  Receipt Date: 20200417
  Transmission Date: 20200714
  Serious: Yes (Death)
  Sender: FDA-Public Use
  Company Number: US-ROCHE-2582828

PATIENT
  Sex: Female

DRUGS (1)
  1. XELODA [Suspect]
     Active Substance: CAPECITABINE
     Indication: PANCREATIC CARCINOMA
     Dosage: TAKE 3 TABLETS BY MOUTH EVERY 10 -12 HOURS DAYS 1-7 AND 15-21 OF A 28 DAY CYCLE WITH FOOD AND 8OZ OF
     Route: 048

REACTIONS (1)
  - Death [Fatal]
